FAERS Safety Report 9621853 (Version 1)
Quarter: 2013Q4

REPORT INFORMATION
  Report Type: Spontaneous
  Country: DE (occurrence: DE)
  Receive Date: 20131015
  Receipt Date: 20131015
  Transmission Date: 20140711
  Serious: Yes (Congenital Anomaly, Other)
  Sender: FDA-Public Use
  Company Number: DE-MYLANLABS-2013S1022790

PATIENT
  Age: 32 Year
  Sex: Female
  Weight: 63 kg

DRUGS (2)
  1. LAMOTRIGIN [Suspect]
     Indication: EPILEPSY
     Route: 048
     Dates: start: 20081009, end: 20090726
  2. FOLIC ACID [Concomitant]
     Indication: PROPHYLAXIS OF NEURAL TUBE DEFECT
     Dosage: 0-41 GW
     Route: 048
     Dates: start: 20081015

REACTIONS (2)
  - Hyperemesis gravidarum [Unknown]
  - Exposure during pregnancy [Unknown]
